FAERS Safety Report 6630260-8 (Version None)
Quarter: 2010Q1

REPORT INFORMATION
  Report Type: 
  Country: None (occurrence: None)
  Receive Date: 20100311
  Receipt Date: 20100303
  Transmission Date: 20100710
  Serious: Yes (Hospitalization)
  Sender: FDA-Public Use
  Company Number: B0637328A

PATIENT
  Sex: Male

DRUGS (5)
  1. AUGMENTIN [Suspect]
     Route: 048
  2. HEPARIN [Suspect]
     Indication: ANTICOAGULANT THERAPY
     Dosage: 220MG PER DAY
     Route: 042
  3. KARDEGIC [Suspect]
     Indication: PLATELET AGGREGATION ABNORMAL
     Dosage: 1UD PER DAY
     Route: 048
  4. LASILIX [Suspect]
     Dosage: 20MG TWICE PER DAY
     Route: 042
  5. RED BLOOD CELL CONCENTRATE [Concomitant]
     Indication: RED BLOOD CELL COUNT DECREASED
     Route: 051
     Dates: start: 20091210, end: 20091210

REACTIONS (3)
  - CHILLS [None]
  - HISTAMINE LEVEL INCREASED [None]
  - PYREXIA [None]
